FAERS Safety Report 7777140-2 (Version None)
Quarter: 2011Q3

REPORT INFORMATION
  Report Type: 
  Country: None (occurrence: None)
  Receive Date: 20110922
  Receipt Date: 20110915
  Transmission Date: 20111222
  Serious: Yes (Other)
  Sender: FDA-Public Use
  Company Number: WAES 1108ESP00015

PATIENT
  Age: 63 Year
  Sex: Female

DRUGS (3)
  1. FOSAMAX [Suspect]
     Indication: OSTEOPOROTIC FRACTURE
     Dosage: PO
     Route: 048
  2. ZOLEDRONATE DISODIUM [Concomitant]
  3. CHOLECALCIFEROL [Concomitant]

REACTIONS (5)
  - FRACTURE DELAYED UNION [None]
  - FRACTURED SACRUM [None]
  - OSTEOPOROTIC FRACTURE [None]
  - PELVIC FRACTURE [None]
  - SPINAL DISORDER [None]
